FAERS Safety Report 6184964-4 (Version None)
Quarter: 2009Q2

REPORT INFORMATION
  Report Type: 
  Country: None (occurrence: None)
  Receive Date: 20090511
  Receipt Date: 20090130
  Transmission Date: 20091009
  Serious: No
  Sender: FDA-Public Use
  Company Number: A0766131A

PATIENT
  Age: 66 Year
  Sex: Female

DRUGS (11)
  1. COREG CR [Suspect]
     Indication: HYPERTENSION
     Dosage: 10MG PER DAY
     Route: 048
     Dates: start: 20090107
  2. CLONIDINE [Concomitant]
  3. SEREVENT [Concomitant]
  4. QVAR 80 [Concomitant]
  5. NASAREL [Concomitant]
  6. SINGULAIR [Concomitant]
  7. PREDNISONE [Concomitant]
  8. CHILDREN'S MULTI VIT [Concomitant]
  9. CITALOPRAM HYDROBROMIDE [Concomitant]
  10. TYLENOL (CAPLET) [Concomitant]
  11. TYLENOL (CAPLET) [Concomitant]

REACTIONS (1)
  - DRUG INEFFECTIVE [None]
